FAERS Safety Report 4870286-8 (Version None)
Quarter: 2005Q4

REPORT INFORMATION
  Report Type: 
  Country: None (occurrence: None)
  Receive Date: 20051228
  Receipt Date: 20051207
  Transmission Date: 20060501
  Serious: Yes (Death, Other)
  Sender: FDA-Public Use
  Company Number: GB200512001544

PATIENT
  Age: 45 Year
  Sex: Female

DRUGS (1)
  1. HUMATROPE [Suspect]
     Indication: GROWTH HORMONE DEFICIENCY

REACTIONS (3)
  - ACUTE PULMONARY OEDEMA [None]
  - NEOPLASM RECURRENCE [None]
  - TACHYARRHYTHMIA [None]
